FAERS Safety Report 8574500-7 (Version None)
Quarter: 2012Q3

REPORT INFORMATION
  Report Type: 
  Country: None (occurrence: None)
  Receive Date: 20120806
  Receipt Date: 20111010
  Transmission Date: 20120928
  Serious: No
  Sender: FDA-Public Use
  Company Number: US-ABBOTT-11P-163-0863336-00

PATIENT
  Sex: Female
  Weight: 59.02 kg

DRUGS (2)
  1. DEPAKOTE ER [Suspect]
     Indication: BIPOLAR DISORDER
  2. LORAZEPAM [Concomitant]
     Indication: ANXIETY

REACTIONS (1)
  - BLOOD TEST ABNORMAL [None]
